FAERS Safety Report 6232548-1 (Version None)
Quarter: 2009Q2

REPORT INFORMATION
  Report Type: 
  Country: None (occurrence: None)
  Receive Date: 20090617
  Receipt Date: 20090608
  Transmission Date: 20091009
  Serious: Yes (Death, Hospitalization, Other)
  Sender: FDA-Public Use
  Company Number: GB-JNJFOC-20081000206

PATIENT
  Age: 69 Year
  Sex: Male

DRUGS (17)
  1. REMICADE [Suspect]
     Dosage: TOTAL OF 5 INFUSION RECEIVED
     Route: 042
  2. REMICADE [Suspect]
     Route: 042
  3. REMICADE [Suspect]
     Route: 042
  4. REMICADE [Suspect]
     Route: 042
  5. REMICADE [Suspect]
     Indication: RHEUMATOID ARTHRITIS
     Route: 042
  6. METHOTREXATE [Concomitant]
  7. PREDNISOLONE [Concomitant]
  8. RANITIDINE [Concomitant]
  9. KETOPROFEN [Concomitant]
  10. OMEPRAZOLE [Concomitant]
  11. PARACETAMOL [Concomitant]
  12. CODEINE PHOSPHATE [Concomitant]
  13. FOLIC ACID [Concomitant]
  14. AZITHROMYCIN [Concomitant]
  15. FUROSEMIDE [Concomitant]
  16. SPIRONOLACTONE [Concomitant]
  17. PERINDOPRIL ERBUMINE [Concomitant]

REACTIONS (8)
  - CARDIAC ARREST [None]
  - DYSPNOEA [None]
  - HAEMOPTYSIS [None]
  - LEFT VENTRICULAR FAILURE [None]
  - LOWER RESPIRATORY TRACT INFECTION [None]
  - LUNG SQUAMOUS CELL CARCINOMA STAGE III [None]
  - PNEUMONIA [None]
  - SEPSIS [None]
